FAERS Safety Report 13466319 (Version 3)
Quarter: 2020Q4

REPORT INFORMATION
  Report Type: Report from Study
  Country: None (occurrence: CA)
  Receive Date: 20170421
  Receipt Date: 20201220
  Transmission Date: 20210113
  Serious: Yes (Hospitalization, Other)
  Sender: FDA-Public Use
  Company Number: CA-ABBVIE-16K-028-1601223-00

PATIENT
  Sex: Male

DRUGS (1)
  1. HUMIRA [Suspect]
     Active Substance: ADALIMUMAB
     Indication: CROHN^S DISEASE
     Route: 058
     Dates: start: 20150124

REACTIONS (23)
  - Internal haemorrhage [Not Recovered/Not Resolved]
  - Hospitalisation [Unknown]
  - Weight increased [Not Recovered/Not Resolved]
  - Malaise [Not Recovered/Not Resolved]
  - Polyneuropathy [Not Recovered/Not Resolved]
  - Fibromyalgia [Not Recovered/Not Resolved]
  - Pain [Not Recovered/Not Resolved]
  - Abdominal pain [Not Recovered/Not Resolved]
  - Post-traumatic stress disorder [Unknown]
  - Tooth disorder [Not Recovered/Not Resolved]
  - Osteonecrosis [Unknown]
  - Crohn^s disease [Not Recovered/Not Resolved]
  - Arthralgia [Not Recovered/Not Resolved]
  - Malabsorption [Not Recovered/Not Resolved]
  - Frustration tolerance decreased [Unknown]
  - Facial neuralgia [Unknown]
  - Haemorrhage [Recovered/Resolved]
  - Malaise [Not Recovered/Not Resolved]
  - Pain [Unknown]
  - Abdominal distension [Not Recovered/Not Resolved]
  - Tinnitus [Not Recovered/Not Resolved]
  - Muscle spasms [Not Recovered/Not Resolved]
  - Emotional distress [Unknown]

NARRATIVE: CASE EVENT DATE: 2015
